FAERS Safety Report 8381268-6 (Version None)
Quarter: 2012Q2

REPORT INFORMATION
  Report Type: 
  Country: None (occurrence: None)
  Receive Date: 20120430
  Receipt Date: 20120412
  Transmission Date: 20120825
  Serious: Yes (Hospitalization)
  Sender: FDA-Public Use
  Company Number: 2012032035

PATIENT
  Age: 13 Year
  Sex: Female

DRUGS (4)
  1. LEFTOSE /00274101/(LYSOZYME) [Concomitant]
  2. MUCODYNE (CARBOCISTEINE) [Concomitant]
  3. IGPRO20 (IMMUNOGLOBULIN HUMAN NORMAL) [Suspect]
     Indication: PRIMARY IMMUNODEFICIENCY SYNDROME
     Dosage: 16 ML 1X/WEEK /SUBCUTANEOUS
     Route: 058
     Dates: start: 20100228
  4. LIVOSTIN [Concomitant]

REACTIONS (1)
  - MENINGITIS ASEPTIC [None]
